FAERS Safety Report 14220308 (Version 1)
Quarter: 2017Q4

REPORT INFORMATION
  Report Type: Spontaneous
  Country: FR (occurrence: FR)
  Receive Date: 20171123
  Receipt Date: 20171123
  Transmission Date: 20180321
  Serious: Yes (Death, Hospitalization, Other)
  Sender: FDA-Public Use
  Company Number: FR-BRISTOL-MYERS SQUIBB COMPANY-BMS-2017-105812

PATIENT
  Age: 58 Year
  Sex: Male

DRUGS (1)
  1. OPDIVO [Suspect]
     Active Substance: NIVOLUMAB
     Indication: HODGKIN^S DISEASE
     Dosage: UNK
     Route: 042
     Dates: start: 20161220, end: 20170329

REACTIONS (4)
  - Coronavirus test positive [Unknown]
  - Stenotrophomonas test positive [Unknown]
  - Lung disorder [Fatal]
  - Bacteraemia [Unknown]

NARRATIVE: CASE EVENT DATE: 20170522
